FAERS Safety Report 8993867 (Version 1)
Quarter: 2013Q1

REPORT INFORMATION
  Report Type: Spontaneous
  Country: US (occurrence: US)
  Receive Date: 20130102
  Receipt Date: 20130102
  Transmission Date: 20140127
  Serious: No
  Sender: FDA-Public Use
  Company Number: US-AMGEN-USASP2012083420

PATIENT
  Age: 52 Year
  Sex: Female

DRUGS (4)
  1. ENBREL [Suspect]
     Indication: PSORIASIS
     Dosage: 50 MG, 2 TIMES/WK
     Dates: start: 20090730
  2. ENBREL [Suspect]
     Indication: PSORIATIC ARTHROPATHY
  3. HUMIRA [Concomitant]
     Dosage: 40 MG, EVERY 2 WEEKS FOR 3 MONTHS
  4. STELARA [Concomitant]

REACTIONS (3)
  - Psoriatic arthropathy [Not Recovered/Not Resolved]
  - Raynaud^s phenomenon [Not Recovered/Not Resolved]
  - Psoriasis [Not Recovered/Not Resolved]
